FAERS Safety Report 8520757-8 (Version None)
Quarter: 2012Q3

REPORT INFORMATION
  Report Type: 
  Country: None (occurrence: None)
  Receive Date: 20120719
  Receipt Date: 20120713
  Transmission Date: 20120928
  Serious: Yes (Other)
  Sender: FDA-Public Use
  Company Number: JP-PFIZER INC-2012126543

PATIENT
  Age: 45 Year
  Sex: Male

DRUGS (1)
  1. VIAGRA [Suspect]
     Indication: ERECTILE DYSFUNCTION
     Dosage: 0.5 TABLETS ONCE A WEEK
     Route: 048
     Dates: start: 20120201, end: 20120401

REACTIONS (1)
  - DEAFNESS NEUROSENSORY [None]
